FAERS Safety Report 25869424 (Version 1)
Quarter: 2025Q4

REPORT INFORMATION
  Report Type: Spontaneous
  Country: US (occurrence: US)
  Receive Date: 20251001
  Receipt Date: 20251001
  Transmission Date: 20260118
  Serious: Yes (Life-Threatening)
  Sender: PFIZER
  Company Number: US-PFIZER INC-PV202500115893

PATIENT
  Age: 34 Year
  Sex: Male

DRUGS (9)
  1. CEFTAZIDIME [Suspect]
     Active Substance: CEFTAZIDIME
     Indication: Campylobacter infection
     Dosage: UNK
  2. ERYTHROMYCIN [Suspect]
     Active Substance: ERYTHROMYCIN
     Indication: Campylobacter infection
     Dosage: UNK
  3. GENTAMICIN SULFATE [Suspect]
     Active Substance: GENTAMICIN SULFATE
     Indication: Campylobacter infection
     Dosage: UNK
  4. LEVOFLOXACIN [Suspect]
     Active Substance: LEVOFLOXACIN
     Indication: Campylobacter infection
     Dosage: UNK
  5. MEROPENEM [Suspect]
     Active Substance: MEROPENEM
     Indication: Campylobacter infection
     Dosage: UNK
  6. PIPERACILLIN SODIUM\TAZOBACTAM SODIUM [Suspect]
     Active Substance: PIPERACILLIN SODIUM\TAZOBACTAM SODIUM
     Indication: Campylobacter infection
     Dosage: UNK
  7. IMIPENEM [Suspect]
     Active Substance: IMIPENEM
     Indication: Campylobacter infection
     Dosage: UNK
  8. PREDNISONE [Concomitant]
     Active Substance: PREDNISONE
     Dosage: UNK
  9. IMMUNE GLOBULIN NOS [Concomitant]
     Active Substance: IMMUNE GLOBULIN NOS
     Dosage: UNK

REACTIONS (3)
  - Multiple-drug resistance [Unknown]
  - Drug ineffective for unapproved indication [Unknown]
  - Off label use [Unknown]
